FAERS Safety Report 10667250 (Version 1)
Quarter: 2014Q4

REPORT INFORMATION
  Report Type: Spontaneous
  Country: US (occurrence: US)
  Receive Date: 20141222
  Receipt Date: 20141222
  Transmission Date: 20150529
  Serious: Yes (Other)
  Sender: FDA-Public Use
  Company Number: US-MYLANLABS-2014M1006531

PATIENT
  Age: 29 Year
  Sex: Male

DRUGS (4)
  1. ATOVAQUONE AND PROGUANIL HYDROCHLORIDE TABLETS [Suspect]
     Active Substance: ATOVAQUONE\PROGUANIL HYDROCHLORIDE
     Dosage: 250/100 MG, BID
     Route: 048
     Dates: start: 20140930
  2. NYSTATIN. [Concomitant]
     Active Substance: NYSTATIN
     Indication: PROPHYLAXIS
     Dosage: UNK
     Dates: start: 20141001
  3. ATOVAQUONE AND PROGUANIL HYDROCHLORIDE TABLETS [Suspect]
     Active Substance: ATOVAQUONE\PROGUANIL HYDROCHLORIDE
     Indication: BABESIOSIS
  4. ATOVAQUONE AND PROGUANIL HYDROCHLORIDE TABLETS [Suspect]
     Active Substance: ATOVAQUONE\PROGUANIL HYDROCHLORIDE
     Indication: OFF LABEL USE

REACTIONS (2)
  - Drug ineffective for unapproved indication [Not Recovered/Not Resolved]
  - Babesiosis [Not Recovered/Not Resolved]

NARRATIVE: CASE EVENT DATE: 20141001
